FAERS Safety Report 22303320 (Version 1)
Quarter: 2023Q2

REPORT INFORMATION
  Report Type: Spontaneous
  Country: US (occurrence: US)
  Receive Date: 20230510
  Receipt Date: 20230510
  Transmission Date: 20230722
  Serious: No
  Sender: FDA-Public Use
  Company Number: US-LUPIN PHARMACEUTICALS INC.-2023-03552

PATIENT

DRUGS (1)
  1. GAVILYTE G [Suspect]
     Active Substance: POLYETHYLENE GLYCOL 3350\POTASSIUM CHLORIDE\SODIUM BICARBONATE\SODIUM CHLORIDE\SODIUM SULFATE
     Indication: Bowel preparation
     Dosage: UNK, (HALF MEDICATION ON SUNDAY AND THE REMAINING HALF ON MONDAY MORNING)
     Route: 065
     Dates: start: 20230430, end: 20230501

REACTIONS (3)
  - Rash [Unknown]
  - Rash papular [Unknown]
  - Wrong technique in product usage process [Unknown]
